FAERS Safety Report 9893524 (Version 4)
Quarter: 2014Q2

REPORT INFORMATION
  Report Type: Spontaneous
  Country: CA (occurrence: CA)
  Receive Date: 20140213
  Receipt Date: 20140417
  Transmission Date: 20141212
  Serious: Yes (Life-Threatening, Other)
  Sender: FDA-Public Use
  Company Number: CA-NOVOPROD-394417

PATIENT
  Age: 37 Year
  Sex: Female
  Weight: 123 kg

DRUGS (5)
  1. TRETTEN [Suspect]
     Indication: FACTOR XIII DEFICIENCY
     Dosage: 2500 UNITS MONTHLY
     Route: 042
     Dates: start: 20130711
  2. TRETTEN [Suspect]
     Dosage: UNK
     Route: 042
     Dates: start: 20140102
  3. RANITIDINE [Concomitant]
     Dosage: 150 MG, BID
     Route: 048
     Dates: start: 201204
  4. FOLIC ACID [Concomitant]
     Dosage: 5 MG, QD
     Route: 048
     Dates: start: 201306, end: 201401
  5. CITALOPRAM [Concomitant]
     Dosage: 10 MG, QD
     Route: 065
     Dates: start: 201107

REACTIONS (5)
  - HELLP syndrome [Recovered/Resolved]
  - Foetal distress syndrome [Recovered/Resolved]
  - H1N1 influenza [Unknown]
  - Premature baby [Unknown]
  - Exposure during pregnancy [Recovered/Resolved]
